FAERS Safety Report 8933026 (Version 1)
Quarter: 2012Q4

REPORT INFORMATION
  Report Type: 
  Country: US (occurrence: US)
  Receive Date: 20121129
  Receipt Date: 20121129
  Transmission Date: 20130627
  Serious: No
  Sender: FDA-Public Use
  Company Number: US-BAYER-2012-113630

PATIENT
  Sex: Female

DRUGS (1)
  1. MIRENA [Suspect]
     Dosage: 20 mcg/24hr, CONT
     Route: 015
     Dates: start: 201203

REACTIONS (8)
  - Acne [None]
  - Hair colour changes [None]
  - Pyrexia [None]
  - Chills [None]
  - Dizziness [None]
  - Fall [None]
  - Hyperhidrosis [None]
  - Cough [None]
